FAERS Safety Report 21457788 (Version 4)
Quarter: 2023Q1

REPORT INFORMATION
  Report Type: Spontaneous
  Country: US (occurrence: US)
  Receive Date: 20221014
  Receipt Date: 20230103
  Transmission Date: 20230417
  Serious: Yes (Other)
  Sender: FDA-Public Use
  Company Number: US-PFIZER INC-PV202200081869

PATIENT
  Age: 74 Year
  Sex: Female

DRUGS (4)
  1. XELJANZ XR [Suspect]
     Active Substance: TOFACITINIB CITRATE
     Indication: Rheumatoid arthritis
     Dosage: 11 MG, 1X/DAY
     Route: 048
     Dates: start: 20200101
  2. INFLUENZA VIRUS VACCINE [Concomitant]
     Active Substance: INFLUENZA VIRUS VACCINE
     Indication: Immunisation
  3. COVID-19 VACCINE [Concomitant]
     Indication: COVID-19 immunisation
  4. VARICELLA-ZOSTER VIRUS STRAIN OKA/MERCK LIVE ANTIGEN [Concomitant]
     Active Substance: VARICELLA-ZOSTER VIRUS STRAIN OKA/MERCK LIVE ANTIGEN
     Indication: Immunisation

REACTIONS (10)
  - Type 1 diabetes mellitus [Unknown]
  - Hepatitis [Unknown]
  - Anaemia [Unknown]
  - Discomfort [Unknown]
  - Pain in extremity [Not Recovered/Not Resolved]
  - Back pain [Not Recovered/Not Resolved]
  - Oropharyngeal pain [Unknown]
  - Vomiting [Unknown]
  - Dry mouth [Unknown]
  - Sensitivity to weather change [Unknown]

NARRATIVE: CASE EVENT DATE: 20221228
